FAERS Safety Report 7432548-X (Version None)
Quarter: 2011Q2

REPORT INFORMATION
  Report Type: 
  Country: None (occurrence: None)
  Receive Date: 20110422
  Receipt Date: 20110413
  Transmission Date: 20111010
  Serious: Yes (Hospitalization, Other)
  Sender: FDA-Public Use
  Company Number: FR-ELI_LILLY_AND_COMPANY-FR201104004592

PATIENT
  Age: 55 Year
  Sex: Male

DRUGS (2)
  1. VALIUM [Concomitant]
     Indication: PSYCHOTIC DISORDER
     Dosage: 10 MG, QD
     Route: 048
  2. ZYPREXA [Suspect]
     Indication: BIPOLAR I DISORDER
     Dosage: 20 MG, QD
     Route: 048
     Dates: start: 20090101

REACTIONS (2)
  - BLOOD CREATININE INCREASED [None]
  - PSYCHOTIC DISORDER [None]
